FAERS Safety Report 4363885-3 (Version None)
Quarter: 2004Q2

REPORT INFORMATION
  Report Type: 
  Country: None (occurrence: None)
  Receive Date: 20040520
  Receipt Date: 20040520
  Transmission Date: 20050107
  Serious: Yes (Life-Threatening)
  Sender: FDA-Public Use
  Company Number: None

PATIENT
  Sex: Male
  Weight: 68.1 kg

DRUGS (5)
  1. CYTOXAN [Suspect]
     Indication: CHRONIC LYMPHOCYTIC LEUKAEMIA
     Dosage: 14.5 MG/KG IV
     Route: 042
  2. CYTOXAN [Suspect]
     Indication: IMMUNOSUPPRESSANT DRUG THERAPY
     Dosage: 14.5 MG/KG IV
     Route: 042
  3. FLUDURABINE [Concomitant]
  4. FK50LE [Concomitant]
  5. TOTAL BODY IRRADIATION [Concomitant]

REACTIONS (1)
  - BONE MARROW TRANSPLANT REJECTION [None]
